FAERS Safety Report 24935754 (Version 1)
Quarter: 2025Q1

REPORT INFORMATION
  Report Type: Spontaneous
  Country: ES (occurrence: ES)
  Receive Date: 20250206
  Receipt Date: 20250206
  Transmission Date: 20250408
  Serious: Yes (Death)
  Sender: CELLTRION
  Company Number: ES-ROCHE-2986929

PATIENT

DRUGS (8)
  1. BEVACIZUMAB [Suspect]
     Active Substance: BEVACIZUMAB
     Indication: Non-small cell lung cancer
     Dates: start: 20211005
  2. ATEZOLIZUMAB [Suspect]
     Active Substance: ATEZOLIZUMAB
     Indication: Non-small cell lung cancer
     Route: 042
     Dates: start: 20211005
  3. CARBOPLATIN [Suspect]
     Active Substance: CARBOPLATIN
     Indication: Non-small cell lung cancer
     Dates: start: 20211005
  4. PACLITAXEL [Suspect]
     Active Substance: PACLITAXEL
     Indication: Non-small cell lung cancer
     Dates: start: 20211005
  5. PITAVASTATIN [Concomitant]
     Active Substance: PITAVASTATIN
  6. METFORMIN\SITAGLIPTIN [Concomitant]
     Active Substance: METFORMIN\SITAGLIPTIN
     Dates: start: 20181214
  7. CISPLATIN [Concomitant]
     Active Substance: CISPLATIN
     Indication: Neoplasm malignant
  8. PEMETREXED [Concomitant]
     Active Substance: PEMETREXED
     Indication: Neoplasm malignant

REACTIONS (3)
  - Death [Fatal]
  - Asthenia [Recovered/Resolved]
  - Underdose [Unknown]

NARRATIVE: CASE EVENT DATE: 20211115
